FAERS Safety Report 5678819-9 (Version None)
Quarter: 2008Q1

REPORT INFORMATION
  Report Type: 
  Country: None (occurrence: None)
  Receive Date: 20080324
  Receipt Date: 20080324
  Transmission Date: 20080703
  Serious: Yes (Hospitalization)
  Sender: FDA-Public Use
  Company Number: None

PATIENT
  Age: 85 Year
  Sex: Male

DRUGS (1)
  1. GLIPIZIDE [Suspect]
     Indication: DIABETES MELLITUS
     Dosage: 7.5MG BID PO
     Route: 048
     Dates: start: 20030409

REACTIONS (2)
  - HYPOGLYCAEMIA [None]
  - ORAL INTAKE REDUCED [None]
